FAERS Safety Report 6198142-6 (Version None)
Quarter: 2009Q2

REPORT INFORMATION
  Report Type: 
  Country: None (occurrence: None)
  Receive Date: 20090521
  Receipt Date: 20090508
  Transmission Date: 20091009
  Serious: Yes (Other)
  Sender: FDA-Public Use
  Company Number: US-ROCHE-552215

PATIENT
  Sex: Female

DRUGS (2)
  1. ACCUTANE [Suspect]
     Route: 048
     Dates: start: 19970915, end: 19980119
  2. ACCUTANE [Suspect]
     Route: 048
     Dates: start: 20010529, end: 20011107

REACTIONS (9)
  - ANAEMIA [None]
  - ANXIETY [None]
  - COLITIS ULCERATIVE [None]
  - DEPRESSION [None]
  - DRY SKIN [None]
  - GASTROOESOPHAGEAL REFLUX DISEASE [None]
  - INFLAMMATORY BOWEL DISEASE [None]
  - IRRITABLE BOWEL SYNDROME [None]
  - PROCTITIS ULCERATIVE [None]
